FAERS Safety Report 10597945 (Version 1)
Quarter: 2014Q4

REPORT INFORMATION
  Report Type: Spontaneous
  Country: US (occurrence: None)
  Receive Date: 20141120
  Receipt Date: 20141120
  Transmission Date: 20150529
  Serious: No
  Sender: FDA-Public Use
  Company Number: None

PATIENT
  Age: 5 Year

DRUGS (1)
  1. BACTRIM [Suspect]
     Active Substance: SULFAMETHOXAZOLE\TRIMETHOPRIM
     Indication: CELLULITIS
     Dosage: 2 TSP TWICE DAILY TAKEN BY MOUTH
     Route: 048
     Dates: start: 20141107, end: 20141114

REACTIONS (1)
  - Rash macular [None]

NARRATIVE: CASE EVENT DATE: 20141116
